FAERS Safety Report 6790066-6 (Version None)
Quarter: 2010Q2

REPORT INFORMATION
  Report Type: 
  Country: None (occurrence: None)
  Receive Date: 20100520
  Receipt Date: 20090528
  Transmission Date: 20101027
  Serious: Yes (Other)
  Sender: FDA-Public Use
  Company Number: 2008065475

PATIENT
  Age: 58 Year
  Sex: Female

DRUGS (7)
  1. PROVERA [Suspect]
     Indication: HORMONE REPLACEMENT THERAPY
     Dosage: 2.5 MG, 1X/DAY, ORAL
     Route: 048
     Dates: start: 19950101, end: 19960101
  2. OGEN [Suspect]
     Indication: HORMONE REPLACEMENT THERAPY
     Dates: start: 19940101, end: 19950101
  3. PREMARIN [Suspect]
     Indication: HORMONE REPLACEMENT THERAPY
     Dosage: 0.625 MG
     Dates: start: 19950101, end: 19960101
  4. PREMPRO [Suspect]
     Indication: HORMONE REPLACEMENT THERAPY
     Dosage: 0.625/2.5MG
     Dates: start: 19960101, end: 20010601
  5. AMITRIPTYLINE HYDROCHLORIDE [Concomitant]
  6. VASOTEC [Concomitant]
  7. DYAZIDE [Concomitant]

REACTIONS (1)
  - BREAST CANCER FEMALE [None]
